FAERS Safety Report 26102496 (Version 1)
Quarter: 2025Q4

REPORT INFORMATION
  Report Type: Spontaneous
  Country: KE (occurrence: KE)
  Receive Date: 20251128
  Receipt Date: 20251128
  Transmission Date: 20260118
  Serious: Yes (Other)
  Sender: BRISTOL-MYERS SQUIBB COMPANY
  Company Number: KE-BRISTOL-MYERS SQUIBB COMPANY-2025-122606

PATIENT
  Age: 69 Year
  Sex: Female

DRUGS (6)
  1. OPDIVO [Suspect]
     Active Substance: NIVOLUMAB
     Indication: Malignant melanoma
  2. OPDIVO [Suspect]
     Active Substance: NIVOLUMAB
  3. OPDIVO [Suspect]
     Active Substance: NIVOLUMAB
  4. OPDIVO [Suspect]
     Active Substance: NIVOLUMAB
  5. OPDIVO [Suspect]
     Active Substance: NIVOLUMAB
  6. OPDIVO [Suspect]
     Active Substance: NIVOLUMAB

REACTIONS (7)
  - Headache [Unknown]
  - Neck pain [Unknown]
  - Off label use [Unknown]
  - Post procedural inflammation [Unknown]
  - Abdominal pain upper [Unknown]
  - Abdominal discomfort [Unknown]
  - Peripheral swelling [Unknown]
